FAERS Safety Report 6087644-9 (Version None)
Quarter: 2009Q1

REPORT INFORMATION
  Report Type: 
  Country: None (occurrence: None)
  Receive Date: 20090223
  Receipt Date: 20090219
  Transmission Date: 20090719
  Serious: Yes (Hospitalization, Other)
  Sender: FDA-Public Use
  Company Number: IT-BRISTOL-MYERS SQUIBB COMPANY-14508626

PATIENT
  Age: 45 Year
  Sex: Female

DRUGS (5)
  1. PACLITAXEL [Suspect]
     Indication: BREAST CANCER
     Dosage: RECD SIX COURSES OF STANDARD DOSE PACLITAXEL
     Dates: end: 20051201
  2. DOXORUBICIN HCL [Suspect]
     Indication: BREAST CANCER
     Dates: end: 20051201
  3. LETROZOLE [Suspect]
     Indication: BREAST CANCER
     Dates: start: 20060101
  4. TRASTUZUMAB [Suspect]
     Indication: BREAST CANCER
     Dosage: RECD 4MG/KG THEN 6 MG/KG EVERY 3 WEEKS
     Dates: start: 20060101
  5. RADIOTHERAPY [Suspect]
     Indication: BREAST CANCER
     Dates: end: 20051201

REACTIONS (2)
  - CARDIAC FAILURE [None]
  - THROMBOSIS [None]
